FAERS Safety Report 13858957 (Version 1)
Quarter: 2017Q3

REPORT INFORMATION
  Report Type: Spontaneous
  Country: US (occurrence: US)
  Receive Date: 20170811
  Receipt Date: 20170811
  Transmission Date: 20171127
  Serious: No
  Sender: FDA-Public Use
  Company Number: US-PERRIGO-16US023289

PATIENT
  Age: 47 Year
  Sex: Female

DRUGS (3)
  1. LORATADINE. [Suspect]
     Active Substance: LORATADINE
     Indication: HEADACHE
  2. LORATADINE. [Suspect]
     Active Substance: LORATADINE
     Indication: SINUS PAIN
     Dosage: 10 MG, QD
     Route: 048
     Dates: start: 20161130, end: 20161201
  3. LORATADINE. [Suspect]
     Active Substance: LORATADINE
     Indication: PYREXIA

REACTIONS (4)
  - Off label use [Recovered/Resolved]
  - Choking [Recovered/Resolved]
  - Dyspnoea [Recovered/Resolved]
  - Foreign body in respiratory tract [Recovered/Resolved]

NARRATIVE: CASE EVENT DATE: 20161130
